FAERS Safety Report 9133756 (Version 1)
Quarter: 2013Q1

REPORT INFORMATION
  Report Type: Spontaneous
  Country: FR (occurrence: FR)
  Receive Date: 20130303
  Receipt Date: 20130303
  Transmission Date: 20140127
  Serious: Yes (Other)
  Sender: FDA-Public Use
  Company Number: FR-TEVA-387694ISR

PATIENT
  Age: 68 Year
  Sex: Female

DRUGS (8)
  1. OXALIPLATIN TEVA [Suspect]
     Indication: OVARIAN EPITHELIAL CANCER
     Dosage: 151 MILLIGRAM DAILY; 6TH COURSE
     Route: 042
     Dates: start: 20121212, end: 20121212
  2. MAGNESIUM SULFATE [Suspect]
  3. CALCIUM GLUCONATE [Suspect]
  4. GEMCITABINE [Concomitant]
     Dosage: 1200 MILLIGRAM DAILY;
  5. GEMCITABINE [Concomitant]
     Dosage: DURING 20 MINUTES
     Dates: start: 20121212, end: 20121212
  6. GEMCITABINE [Concomitant]
     Dosage: DURING 20 MINUTES
     Dates: start: 20121212, end: 20121212
  7. SOLUMEDROL [Concomitant]
     Dosage: 80 MILLIGRAM DAILY;
     Dates: start: 20121212, end: 20121212
  8. EMEND [Concomitant]
     Dosage: 125 MILLIGRAM DAILY;
     Dates: start: 20121212, end: 20121212

REACTIONS (2)
  - Asphyxia [Recovered/Resolved]
  - Feeling abnormal [Recovered/Resolved]
